FAERS Safety Report 23476436 (Version 1)
Quarter: 2024Q1

REPORT INFORMATION
  Report Type: Spontaneous
  Country: FR (occurrence: FR)
  Receive Date: 20240204
  Receipt Date: 20240204
  Transmission Date: 20240409
  Serious: No
  Sender: FDA-Public Use
  Company Number: FR-EXELIXIS-CABO-23062790

PATIENT
  Age: 76 Year
  Sex: Male
  Weight: 105 kg

DRUGS (1)
  1. CABOMETYX [Suspect]
     Active Substance: CABOZANTINIB S-MALATE
     Indication: Product used for unknown indication
     Dosage: 60 MG, QD
     Route: 048
     Dates: start: 20230217, end: 20230318

REACTIONS (2)
  - Anorectal discomfort [Not Recovered/Not Resolved]
  - Palmar-plantar erythrodysaesthesia syndrome [Not Recovered/Not Resolved]
